FAERS Safety Report 6975799-0 (Version None)
Quarter: 2010Q3

REPORT INFORMATION
  Report Type: 
  Country: None (occurrence: None)
  Receive Date: 20100910
  Receipt Date: 20090511
  Transmission Date: 20110219
  Serious: No
  Sender: FDA-Public Use
  Company Number: US-WYE-H08849909

PATIENT
  Sex: Male
  Weight: 95.34 kg

DRUGS (4)
  1. PRISTIQ [Suspect]
     Indication: DEPRESSION
     Route: 048
     Dates: start: 20090405
  2. BENICAR [Concomitant]
  3. CRESTOR [Concomitant]
  4. METOPROLOL TARTRATE [Concomitant]

REACTIONS (7)
  - ANXIETY [None]
  - DECREASED APPETITE [None]
  - DRY MOUTH [None]
  - FEELING ABNORMAL [None]
  - NERVOUSNESS [None]
  - PSYCHOMOTOR HYPERACTIVITY [None]
  - TREMOR [None]
